FAERS Safety Report 9586164 (Version 1)
Quarter: 2013Q3

REPORT INFORMATION
  Report Type: Spontaneous
  Country: KR (occurrence: None)
  Receive Date: 20130926
  Receipt Date: 20130926
  Transmission Date: 20140515
  Serious: Yes (Other)
  Sender: FDA-Public Use
  Company Number: 2013-01357

PATIENT
  Age: 66 Year
  Sex: Female

DRUGS (4)
  1. VALPROIC ACID (UNKNOWN) [Suspect]
     Indication: EPILEPSY
  2. TOPIRAMATE (UNKNOWN) (TOPIRAMATE) [Suspect]
  3. CARBAMAZEPINE (UNKNOWN) [Suspect]
  4. VIGABATRIN (UNKNOWN) [Suspect]

REACTIONS (1)
  - Toxic encephalopathy [None]
